FAERS Safety Report 15059414 (Version 1)
Quarter: 2018Q2

REPORT INFORMATION
  Report Type: Spontaneous
  Country: AT (occurrence: AT)
  Receive Date: 20180625
  Receipt Date: 20180625
  Transmission Date: 20180711
  Serious: Yes (Other)
  Sender: FDA-Public Use
  Company Number: AT-MYLANLABS-2018M1044467

PATIENT
  Sex: Female

DRUGS (4)
  1. LAMOTRIGINE. [Suspect]
     Active Substance: LAMOTRIGINE
     Indication: PROPHYLAXIS
     Dosage: 100-0-200 MG/DAY
     Route: 065
  2. LITHIUM. [Suspect]
     Active Substance: LITHIUM
     Indication: BIPOLAR I DISORDER
     Dosage: 450 MG, TWO PROLONGED-RELEASE LITHIUM TABLETS IN TWO DIVIDED DOSES
     Route: 065
     Dates: start: 201210, end: 201406
  3. LITHIUM. [Suspect]
     Active Substance: LITHIUM
     Indication: BIPOLAR I DISORDER
     Dosage: DOSE 25% REDUCED
     Route: 065
     Dates: start: 201407
  4. LITHIUM. [Suspect]
     Active Substance: LITHIUM
     Dosage: ONE TABLET AT NIGHT (DOSE 50% REDUCED).
     Route: 065
     Dates: start: 201502

REACTIONS (1)
  - Renal impairment [Recovering/Resolving]
